FAERS Safety Report 12333285 (Version 2)
Quarter: 2018Q2

REPORT INFORMATION
  Report Type: Report from Study
  Country: US (occurrence: US)
  Receive Date: 20160504
  Receipt Date: 20180425
  Transmission Date: 20180711
  Serious: Yes (Other)
  Sender: FDA-Public Use
  Company Number: US-ROCHE-1717321

PATIENT
  Sex: Female

DRUGS (12)
  1. ACIDOPHILUS [Concomitant]
     Active Substance: LACTOBACILLUS ACIDOPHILUS
     Dosage: EVERY MORNING
     Route: 048
  2. ESBRIET [Suspect]
     Active Substance: PIRFENIDONE
     Dosage: 2 CAPSULE PER  3 TIMES A DAY, ONGOING: UNKNOWN
     Route: 048
     Dates: start: 20151121
  3. PRILOSEC [Concomitant]
     Active Substance: OMEPRAZOLE MAGNESIUM
     Route: 065
  4. NORCO [Concomitant]
     Active Substance: ACETAMINOPHEN\HYDROCODONE BITARTRATE
     Indication: PAIN
     Dosage: 7.5-325 MG, MAX 2 TABLET
     Route: 065
  5. LORTAB [Concomitant]
     Active Substance: ACETAMINOPHEN\HYDROCODONE BITARTRATE
  6. DIOVAN [Concomitant]
     Active Substance: VALSARTAN
     Dosage: 160-12.5 MG PER TABLET EVERY MORNING
     Route: 048
  7. SYNTHROID [Concomitant]
     Active Substance: LEVOTHYROXINE SODIUM
     Dosage: EVERY MORNING BEFORE BREAKFAST
     Route: 048
  8. MOBIC [Concomitant]
     Active Substance: MELOXICAM
     Route: 048
  9. VESICARE [Concomitant]
     Active Substance: SOLIFENACIN SUCCINATE
     Route: 048
  10. ESBRIET [Suspect]
     Active Substance: PIRFENIDONE
     Indication: IDIOPATHIC PULMONARY FIBROSIS
     Dosage: 3 CAPSULE PER  3 TIMES A DAY (TOTALLY 2403 MG)
     Route: 048
     Dates: start: 20151121
  11. ACTOS [Concomitant]
     Active Substance: PIOGLITAZONE HYDROCHLORIDE
     Route: 065
  12. OXYGEN. [Concomitant]
     Active Substance: OXYGEN
     Dosage: 2 PM CONT WHILE RESTING, 4 ILPM CONT WITH EXERTION
     Route: 065

REACTIONS (17)
  - Pain in extremity [Unknown]
  - Blood potassium increased [Unknown]
  - Arthralgia [Unknown]
  - Abdominal pain [Unknown]
  - Crohn^s disease [Unknown]
  - Paraesthesia [Unknown]
  - Muscle spasms [Unknown]
  - Dyspepsia [Unknown]
  - White blood cell count increased [Unknown]
  - Myalgia [Unknown]
  - Nausea [Unknown]
  - Bronchitis [Unknown]
  - Skin exfoliation [Unknown]
  - Blood creatinine increased [Unknown]
  - Haematochezia [Unknown]
  - Vision blurred [Unknown]
  - Hypoaesthesia [Unknown]
